FAERS Safety Report 6272529-5 (Version None)
Quarter: 2009Q3

REPORT INFORMATION
  Report Type: 
  Country: None (occurrence: None)
  Receive Date: 20090716
  Receipt Date: 20090716
  Transmission Date: 20100115
  Serious: Yes (Other)
  Sender: FDA-Public Use
  Company Number: None

PATIENT
  Age: 52 Year
  Sex: Female
  Weight: 61.6892 kg

DRUGS (1)
  1. TERBINAFINE HYDROCHLORIDE [Suspect]
     Indication: ONYCHOMYCOSIS
     Dosage: 1 TABLET 1 PER DAY PO
     Route: 048
     Dates: start: 20090609, end: 20090702

REACTIONS (15)
  - ABDOMINAL PAIN [None]
  - ABDOMINAL PAIN UPPER [None]
  - AGEUSIA [None]
  - ASTHENIA [None]
  - DEPRESSION [None]
  - DYSGEUSIA [None]
  - FATIGUE [None]
  - HYPOPHAGIA [None]
  - INSOMNIA [None]
  - MUSCLE SPASMS [None]
  - NAUSEA [None]
  - OROPHARYNGEAL PAIN [None]
  - QUALITY OF LIFE DECREASED [None]
  - THROAT TIGHTNESS [None]
  - WEIGHT DECREASED [None]
